FAERS Safety Report 10222884 (Version 1)
Quarter: 2014Q2

REPORT INFORMATION
  Report Type: Report from Study
  Country: CL (occurrence: CL)
  Receive Date: 20140607
  Receipt Date: 20140607
  Transmission Date: 20141212
  Serious: Yes (Other)
  Sender: FDA-Public Use
  Company Number: CL-ROCHE-1414450

PATIENT
  Age: 51 Year
  Sex: Male
  Weight: 79.1 kg

DRUGS (2)
  1. XELODA [Suspect]
     Indication: RECTAL CANCER
     Dosage: 14-DAY-CYCLE
     Route: 048
     Dates: start: 20140110
  2. OXALIPLATIN [Suspect]
     Indication: RECTAL CANCER
     Route: 042
     Dates: start: 20140109

REACTIONS (1)
  - Immune system disorder [Not Recovered/Not Resolved]
